FAERS Safety Report 16958457 (Version 3)
Quarter: 2019Q4

REPORT INFORMATION
  Report Type: Spontaneous
  Country: ES (occurrence: ES)
  Receive Date: 20191024
  Receipt Date: 20191218
  Transmission Date: 20200122
  Serious: Yes (Hospitalization, Other)
  Sender: FDA-Public Use
  Company Number: ES-SA-2019SA291921

PATIENT
  Age: 51 Year
  Sex: Female

DRUGS (3)
  1. SEVELAMER CARBONATE. [Suspect]
     Active Substance: SEVELAMER CARBONATE
     Indication: CHRONIC KIDNEY DISEASE-MINERAL AND BONE DISORDER
     Dosage: 4.8 G, QD
  2. SEVELAMER HYDROCHLORIDE. [Suspect]
     Active Substance: SEVELAMER HYDROCHLORIDE
     Indication: CHRONIC KIDNEY DISEASE-MINERAL AND BONE DISORDER
     Dosage: 4 G, QD
  3. LANTHANUM CARBONATE. [Concomitant]
     Active Substance: LANTHANUM CARBONATE
     Indication: CHRONIC KIDNEY DISEASE-MINERAL AND BONE DISORDER
     Dosage: 3 G, QD

REACTIONS (12)
  - Ileal ulcer [Recovered/Resolved]
  - Gastrointestinal bacterial infection [Unknown]
  - Crystal deposit intestine [Unknown]
  - Gastrointestinal erosion [Recovered/Resolved]
  - Erosive oesophagitis [Recovered/Resolved]
  - Gastrointestinal injury [Recovered/Resolved]
  - Colitis erosive [Recovered/Resolved]
  - Erosive duodenitis [Recovered/Resolved]
  - Haematochezia [Recovered/Resolved]
  - Melaena [Recovered/Resolved]
  - Anaemia [Recovered/Resolved]
  - Asthenia [Recovering/Resolving]
